FAERS Safety Report 8579205-4 (Version None)
Quarter: 2012Q3

REPORT INFORMATION
  Report Type: 
  Country: None (occurrence: None)
  Receive Date: 20120730
  Receipt Date: 20120730
  Transmission Date: 20120928
  Serious: Yes (Other)
  Sender: FDA-Public Use
  Company Number: None

PATIENT
  Age: 42 Year
  Sex: Female
  Weight: 63.5036 kg

DRUGS (1)
  1. ALVESCO [Suspect]
     Indication: ASTHMA
     Dosage: 160 MCG TWICE DAILY INTRAPLEURA
     Route: 034
     Dates: start: 20110505, end: 20120728

REACTIONS (3)
  - CONDITION AGGRAVATED [None]
  - DEVICE MALFUNCTION [None]
  - ASTHMA [None]
